FAERS Safety Report 9054882 (Version 2)
Quarter: 2013Q2

REPORT INFORMATION
  Report Type: Spontaneous
  Country: US (occurrence: US)
  Receive Date: 20130208
  Receipt Date: 20130426
  Transmission Date: 20140414
  Serious: Yes (Death, Other)
  Sender: FDA-Public Use
  Company Number: US-ABBOTT-13P-163-1045338-00

PATIENT
  Age: 44 Year
  Sex: Female
  Weight: 109.41 kg

DRUGS (8)
  1. HUMIRA [Suspect]
     Indication: PSORIASIS
     Dates: start: 20101029, end: 20101029
  2. HUMIRA [Suspect]
     Dates: start: 20101105
  3. MORPHINE [Concomitant]
     Indication: PRODUCT USED FOR UNKNOWN INDICATION
  4. CARBAMAZEPINE [Concomitant]
     Indication: PRODUCT USED FOR UNKNOWN INDICATION
  5. ALPRAZOLAM [Concomitant]
     Indication: PRODUCT USED FOR UNKNOWN INDICATION
  6. PYROXETINE [Concomitant]
     Indication: PRODUCT USED FOR UNKNOWN INDICATION
  7. TOPIRAMATE [Concomitant]
     Indication: PRODUCT USED FOR UNKNOWN INDICATION
  8. INTRAUTERINE CONTRACEPTIVE DEVICE [Concomitant]
     Indication: CONTRACEPTION

REACTIONS (3)
  - Ruptured ectopic pregnancy [Fatal]
  - Haemorrhage [Fatal]
  - Ectopic pregnancy [Unknown]
